FAERS Safety Report 21720334 (Version 1)
Quarter: 2022Q4

REPORT INFORMATION
  Report Type: Spontaneous
  Country: US (occurrence: US)
  Receive Date: 20221213
  Receipt Date: 20221213
  Transmission Date: 20230113
  Serious: No
  Sender: FDA-Public Use
  Company Number: US-TEVA-2022-US-2832001

PATIENT
  Sex: Female

DRUGS (1)
  1. COPAXONE [Suspect]
     Active Substance: GLATIRAMER ACETATE
     Indication: Product used for unknown indication
     Dosage: FORM STRENGTH AND ROUTE UNKNOWN, 3 EVERY 1 WEEK
     Route: 065

REACTIONS (4)
  - Injection site scar [Unknown]
  - Injection site pain [Unknown]
  - Infusion site erythema [Unknown]
  - Injection site mass [Unknown]
